FAERS Safety Report 25048060 (Version 1)
Quarter: 2025Q1

REPORT INFORMATION
  Report Type: Spontaneous
  Country: CA (occurrence: CA)
  Receive Date: 20250306
  Receipt Date: 20250306
  Transmission Date: 20250408
  Serious: Yes (Death, Life-Threatening, Hospitalization, Disabling, Congenital Anomaly, Other)
  Sender: Haleon PLC
  Company Number: CA-SANDOZ-SDZ2024CA107727

PATIENT
  Age: 40 Year
  Sex: Female
  Weight: 96 kg

DRUGS (469)
  1. DICLOFENAC SODIUM [Suspect]
     Active Substance: DICLOFENAC SODIUM
     Indication: Product used for unknown indication
  2. DICLOFENAC SODIUM [Suspect]
     Active Substance: DICLOFENAC SODIUM
  3. DICLOFENAC SODIUM [Suspect]
     Active Substance: DICLOFENAC SODIUM
  4. VOLTAREN [Suspect]
     Active Substance: DICLOFENAC SODIUM
     Indication: Product used for unknown indication
  5. VOLTAREN [Suspect]
     Active Substance: DICLOFENAC SODIUM
     Route: 058
  6. CHLORHEXIDINE GLUCONATE [Suspect]
     Active Substance: CHLORHEXIDINE GLUCONATE
     Indication: Product used for unknown indication
  7. CHLORHEXIDINE GLUCONATE [Suspect]
     Active Substance: CHLORHEXIDINE GLUCONATE
     Indication: Rheumatoid arthritis
  8. CHLORHEXIDINE GLUCONATE [Suspect]
     Active Substance: CHLORHEXIDINE GLUCONATE
  9. ACETAMINOPHEN [Suspect]
     Active Substance: ACETAMINOPHEN
     Indication: Rheumatoid arthritis
  10. ACETAMINOPHEN [Suspect]
     Active Substance: ACETAMINOPHEN
     Indication: Product used for unknown indication
  11. ACETAMINOPHEN [Suspect]
     Active Substance: ACETAMINOPHEN
  12. ACETAMINOPHEN [Suspect]
     Active Substance: ACETAMINOPHEN
  13. PHENYLEPHRINE HYDROCHLORIDE [Suspect]
     Active Substance: PHENYLEPHRINE HYDROCHLORIDE
     Indication: Rheumatoid arthritis
  14. PHENYLEPHRINE HYDROCHLORIDE [Suspect]
     Active Substance: PHENYLEPHRINE HYDROCHLORIDE
  15. PHENYLEPHRINE HYDROCHLORIDE [Suspect]
     Active Substance: PHENYLEPHRINE HYDROCHLORIDE
  16. PHENYLEPHRINE HYDROCHLORIDE [Suspect]
     Active Substance: PHENYLEPHRINE HYDROCHLORIDE
  17. HYDROCORTISONE [Suspect]
     Active Substance: HYDROCORTISONE
     Indication: Product used for unknown indication
  18. HYDROCORTISONE [Suspect]
     Active Substance: HYDROCORTISONE
  19. VITAMIN D3 [Suspect]
     Active Substance: CHOLECALCIFEROL
     Indication: Product use in unapproved indication
  20. TUMS ULTRA [Suspect]
     Active Substance: CALCIUM CARBONATE
     Indication: Product used for unknown indication
  21. ADALIMUMAB [Suspect]
     Active Substance: ADALIMUMAB
     Indication: Rheumatoid arthritis
     Route: 058
  22. ADALIMUMAB [Suspect]
     Active Substance: ADALIMUMAB
     Route: 058
  23. ADALIMUMAB [Suspect]
     Active Substance: ADALIMUMAB
     Route: 042
  24. ADALIMUMAB [Suspect]
     Active Substance: ADALIMUMAB
     Route: 042
  25. ADALIMUMAB [Suspect]
     Active Substance: ADALIMUMAB
     Route: 058
  26. ADALIMUMAB [Suspect]
     Active Substance: ADALIMUMAB
     Route: 058
  27. CANDESARTAN [Suspect]
     Active Substance: CANDESARTAN
     Indication: Migraine
     Route: 048
  28. CANDESARTAN [Suspect]
     Active Substance: CANDESARTAN
     Indication: Product used for unknown indication
     Route: 050
  29. ERELZI [Suspect]
     Active Substance: ETANERCEPT-SZZS
     Indication: Rheumatoid arthritis
     Route: 058
  30. ERELZI [Suspect]
     Active Substance: ETANERCEPT-SZZS
     Route: 058
  31. ERELZI [Suspect]
     Active Substance: ETANERCEPT-SZZS
     Route: 058
  32. ERELZI [Suspect]
     Active Substance: ETANERCEPT-SZZS
  33. ERELZI [Suspect]
     Active Substance: ETANERCEPT-SZZS
  34. ERELZI [Suspect]
     Active Substance: ETANERCEPT-SZZS
     Route: 048
  35. DICLOFENAC SODIUM [Suspect]
     Active Substance: DICLOFENAC SODIUM
     Indication: Product use in unapproved indication
     Route: 058
  36. DICLOFENAC SODIUM [Suspect]
     Active Substance: DICLOFENAC SODIUM
     Route: 058
  37. METFORMIN HYDROCHLORIDE [Suspect]
     Active Substance: METFORMIN HYDROCHLORIDE
     Indication: Product used for unknown indication
  38. ALENDRONIC ACID [Suspect]
     Active Substance: ALENDRONIC ACID
     Indication: Rheumatoid arthritis
     Route: 048
  39. ALENDRONIC ACID [Suspect]
     Active Substance: ALENDRONIC ACID
  40. ALENDRONIC ACID [Suspect]
     Active Substance: ALENDRONIC ACID
     Route: 048
  41. ALENDRONIC ACID [Suspect]
     Active Substance: ALENDRONIC ACID
     Route: 016
  42. COSENTYX [Suspect]
     Active Substance: SECUKINUMAB
     Indication: Psoriatic arthropathy
  43. COSENTYX [Suspect]
     Active Substance: SECUKINUMAB
     Indication: Rheumatoid arthritis
  44. COSENTYX [Suspect]
     Active Substance: SECUKINUMAB
  45. AIMOVIG [Suspect]
     Active Substance: ERENUMAB-AOOE
     Indication: Migraine
  46. AIMOVIG [Suspect]
     Active Substance: ERENUMAB-AOOE
     Indication: Product used for unknown indication
  47. AIMOVIG [Suspect]
     Active Substance: ERENUMAB-AOOE
  48. AIMOVIG [Suspect]
     Active Substance: ERENUMAB-AOOE
  49. FOLIC ACID [Suspect]
     Active Substance: FOLIC ACID
     Indication: Rheumatoid arthritis
  50. FOLIC ACID [Suspect]
     Active Substance: FOLIC ACID
     Indication: Product used for unknown indication
     Route: 048
  51. FOLIC ACID [Suspect]
     Active Substance: FOLIC ACID
  52. FOLIC ACID [Suspect]
     Active Substance: FOLIC ACID
     Route: 048
  53. FOLIC ACID [Suspect]
     Active Substance: FOLIC ACID
     Route: 048
  54. FOLIC ACID [Suspect]
     Active Substance: FOLIC ACID
     Route: 048
  55. FOLIC ACID [Suspect]
     Active Substance: FOLIC ACID
     Route: 058
  56. FOLIC ACID [Suspect]
     Active Substance: FOLIC ACID
  57. FOLIC ACID [Suspect]
     Active Substance: FOLIC ACID
     Route: 048
  58. FOLIC ACID [Suspect]
     Active Substance: FOLIC ACID
     Route: 058
  59. FOLIC ACID [Suspect]
     Active Substance: FOLIC ACID
     Route: 048
  60. FOLIC ACID [Suspect]
     Active Substance: FOLIC ACID
  61. FOLIC ACID [Suspect]
     Active Substance: FOLIC ACID
     Route: 048
  62. FOLIC ACID [Suspect]
     Active Substance: FOLIC ACID
  63. FOLIC ACID [Suspect]
     Active Substance: FOLIC ACID
  64. FOLIC ACID [Suspect]
     Active Substance: FOLIC ACID
  65. FOLIC ACID [Suspect]
     Active Substance: FOLIC ACID
  66. FOLIC ACID [Suspect]
     Active Substance: FOLIC ACID
  67. FOLIC ACID [Suspect]
     Active Substance: FOLIC ACID
  68. FOLIC ACID [Suspect]
     Active Substance: FOLIC ACID
  69. FOLIC ACID [Suspect]
     Active Substance: FOLIC ACID
     Route: 058
  70. FOLIC ACID [Suspect]
     Active Substance: FOLIC ACID
  71. HYDROXYCHLOROQUINE SULFATE [Suspect]
     Active Substance: HYDROXYCHLOROQUINE SULFATE
     Indication: Rheumatoid arthritis
     Route: 048
  72. HYDROXYCHLOROQUINE SULFATE [Suspect]
     Active Substance: HYDROXYCHLOROQUINE SULFATE
     Route: 048
  73. HYDROXYCHLOROQUINE SULFATE [Suspect]
     Active Substance: HYDROXYCHLOROQUINE SULFATE
  74. HYDROXYCHLOROQUINE SULFATE [Suspect]
     Active Substance: HYDROXYCHLOROQUINE SULFATE
  75. HYDROXYCHLOROQUINE SULFATE [Suspect]
     Active Substance: HYDROXYCHLOROQUINE SULFATE
  76. HYDROXYCHLOROQUINE SULFATE [Suspect]
     Active Substance: HYDROXYCHLOROQUINE SULFATE
  77. HYDROXYCHLOROQUINE SULFATE [Suspect]
     Active Substance: HYDROXYCHLOROQUINE SULFATE
  78. HYDROXYCHLOROQUINE SULFATE [Suspect]
     Active Substance: HYDROXYCHLOROQUINE SULFATE
  79. HYDROXYCHLOROQUINE SULFATE [Suspect]
     Active Substance: HYDROXYCHLOROQUINE SULFATE
     Route: 048
  80. INFLIXIMAB [Suspect]
     Active Substance: INFLIXIMAB
     Indication: Rheumatoid arthritis
     Route: 042
  81. INFLIXIMAB [Suspect]
     Active Substance: INFLIXIMAB
     Indication: Product used for unknown indication
     Route: 042
  82. INFLIXIMAB [Suspect]
     Active Substance: INFLIXIMAB
     Route: 042
  83. INFLIXIMAB [Suspect]
     Active Substance: INFLIXIMAB
     Route: 058
  84. INFLIXIMAB [Suspect]
     Active Substance: INFLIXIMAB
     Route: 042
  85. INFLIXIMAB [Suspect]
     Active Substance: INFLIXIMAB
     Route: 042
  86. INFLIXIMAB [Suspect]
     Active Substance: INFLIXIMAB
  87. INFLIXIMAB [Suspect]
     Active Substance: INFLIXIMAB
  88. INFLIXIMAB [Suspect]
     Active Substance: INFLIXIMAB
  89. INFLIXIMAB [Suspect]
     Active Substance: INFLIXIMAB
  90. ISOPROPYL ALCOHOL [Suspect]
     Active Substance: ISOPROPYL ALCOHOL
     Indication: Product used for unknown indication
  91. ISOPROPYL ALCOHOL [Suspect]
     Active Substance: ISOPROPYL ALCOHOL
  92. KEVZARA [Suspect]
     Active Substance: SARILUMAB
     Indication: Product used for unknown indication
  93. LAMICTAL [Suspect]
     Active Substance: LAMOTRIGINE
     Route: 048
  94. LAMICTAL [Suspect]
     Active Substance: LAMOTRIGINE
     Route: 048
  95. LAMICTAL [Suspect]
     Active Substance: LAMOTRIGINE
     Route: 048
  96. LAMICTAL [Suspect]
     Active Substance: LAMOTRIGINE
     Route: 048
  97. LAMICTAL [Suspect]
     Active Substance: LAMOTRIGINE
     Route: 048
  98. LAMICTAL [Suspect]
     Active Substance: LAMOTRIGINE
     Route: 048
  99. LAMICTAL [Suspect]
     Active Substance: LAMOTRIGINE
     Route: 048
  100. LAMICTAL [Suspect]
     Active Substance: LAMOTRIGINE
     Route: 048
  101. LAMICTAL [Suspect]
     Active Substance: LAMOTRIGINE
     Route: 048
  102. FLUMETHASONE PIVALATE [Suspect]
     Active Substance: FLUMETHASONE PIVALATE
     Indication: Product used for unknown indication
     Route: 003
  103. MINOCYCLINE HYDROCHLORIDE [Suspect]
     Active Substance: MINOCYCLINE HYDROCHLORIDE
     Indication: Product used for unknown indication
  104. MINOCYCLINE HYDROCHLORIDE [Suspect]
     Active Substance: MINOCYCLINE HYDROCHLORIDE
     Indication: Rheumatoid arthritis
  105. MEGLUMINE [Suspect]
     Active Substance: MEGLUMINE
     Indication: Product used for unknown indication
     Route: 042
  106. MEGLUMINE [Suspect]
     Active Substance: MEGLUMINE
  107. METHYLPREDNISOLONE [Suspect]
     Active Substance: METHYLPREDNISOLONE
     Indication: Product used for unknown indication
  108. METHYLPREDNISOLONE [Suspect]
     Active Substance: METHYLPREDNISOLONE
  109. METHYLPREDNISOLONE SODIUM SUCCINATE [Suspect]
     Active Substance: METHYLPREDNISOLONE SODIUM SUCCINATE
     Indication: Product used for unknown indication
  110. MINOCIN [Suspect]
     Active Substance: MINOCYCLINE HYDROCHLORIDE
     Indication: Rheumatoid arthritis
  111. MINOCYCLINE [Suspect]
     Active Substance: MINOCYCLINE HYDROCHLORIDE
     Indication: Product used for unknown indication
  112. MYRBETRIQ [Suspect]
     Active Substance: MIRABEGRON
     Indication: Product used for unknown indication
  113. MYRBETRIQ [Suspect]
     Active Substance: MIRABEGRON
  114. MYRBETRIQ [Suspect]
     Active Substance: MIRABEGRON
  115. MYRBETRIQ [Suspect]
     Active Substance: MIRABEGRON
  116. MYRBETRIQ [Suspect]
     Active Substance: MIRABEGRON
  117. NAPROSYN [Suspect]
     Active Substance: NAPROXEN
     Indication: Product used for unknown indication
  118. NAPROSYN [Suspect]
     Active Substance: NAPROXEN
  119. NAPROXEN SODIUM [Suspect]
     Active Substance: NAPROXEN SODIUM
     Indication: Rheumatoid arthritis
  120. NAPROXEN SODIUM [Suspect]
     Active Substance: NAPROXEN SODIUM
     Indication: Product used for unknown indication
  121. NAPROXEN SODIUM [Suspect]
     Active Substance: NAPROXEN SODIUM
  122. PSEUDOEPHEDRINE [Suspect]
     Active Substance: PSEUDOEPHEDRINE
     Indication: Product used for unknown indication
  123. NICOTINAMIDE [Suspect]
     Active Substance: NIACINAMIDE
     Indication: Product used for unknown indication
  124. NICOTINAMIDE [Suspect]
     Active Substance: NIACINAMIDE
  125. NUCALA [Suspect]
     Active Substance: MEPOLIZUMAB
     Indication: Product used for unknown indication
  126. REMICADE [Suspect]
     Active Substance: INFLIXIMAB
     Indication: Product used for unknown indication
     Route: 042
  127. REMICADE [Suspect]
     Active Substance: INFLIXIMAB
  128. REMICADE [Suspect]
     Active Substance: INFLIXIMAB
  129. REMICADE [Suspect]
     Active Substance: INFLIXIMAB
  130. REMICADE [Suspect]
     Active Substance: INFLIXIMAB
  131. REMICADE [Suspect]
     Active Substance: INFLIXIMAB
  132. REMICADE [Suspect]
     Active Substance: INFLIXIMAB
     Route: 058
  133. REMICADE [Suspect]
     Active Substance: INFLIXIMAB
  134. REMICADE [Suspect]
     Active Substance: INFLIXIMAB
  135. ORENCIA [Suspect]
     Active Substance: ABATACEPT
     Indication: Rheumatoid arthritis
  136. ORENCIA [Suspect]
     Active Substance: ABATACEPT
  137. ORENCIA [Suspect]
     Active Substance: ABATACEPT
  138. ORENCIA [Suspect]
     Active Substance: ABATACEPT
  139. ORENCIA [Suspect]
     Active Substance: ABATACEPT
  140. ORENCIA [Suspect]
     Active Substance: ABATACEPT
  141. ORENCIA [Suspect]
     Active Substance: ABATACEPT
  142. ORENCIA [Suspect]
     Active Substance: ABATACEPT
  143. ORENCIA [Suspect]
     Active Substance: ABATACEPT
  144. ORENCIA [Suspect]
     Active Substance: ABATACEPT
  145. ORENCIA [Suspect]
     Active Substance: ABATACEPT
     Route: 058
  146. ORENCIA [Suspect]
     Active Substance: ABATACEPT
  147. ORENCIA [Suspect]
     Active Substance: ABATACEPT
  148. ORENCIA [Suspect]
     Active Substance: ABATACEPT
     Route: 058
  149. OXYCODONE TEREPHTHALATE [Suspect]
     Active Substance: OXYCODONE TEREPHTHALATE
     Indication: Product used for unknown indication
  150. PERIOGARD [Suspect]
     Active Substance: CHLORHEXIDINE GLUCONATE
     Indication: Product used for unknown indication
  151. PHTHALYLSULFATHIAZOLE [Suspect]
     Active Substance: PHTHALYLSULFATHIAZOLE
     Indication: Product used for unknown indication
  152. PHTHALYLSULFATHIAZOLE [Suspect]
     Active Substance: PHTHALYLSULFATHIAZOLE
     Indication: Rheumatoid arthritis
     Route: 048
  153. PHTHALYLSULFATHIAZOLE [Suspect]
     Active Substance: PHTHALYLSULFATHIAZOLE
  154. PHTHALYLSULFATHIAZOLE [Suspect]
     Active Substance: PHTHALYLSULFATHIAZOLE
  155. PHTHALYLSULFATHIAZOLE [Suspect]
     Active Substance: PHTHALYLSULFATHIAZOLE
     Route: 058
  156. PHTHALYLSULFATHIAZOLE [Suspect]
     Active Substance: PHTHALYLSULFATHIAZOLE
     Route: 048
  157. PHTHALYLSULFATHIAZOLE [Suspect]
     Active Substance: PHTHALYLSULFATHIAZOLE
  158. PHTHALYLSULFATHIAZOLE [Suspect]
     Active Substance: PHTHALYLSULFATHIAZOLE
  159. PREDNISONE [Suspect]
     Active Substance: PREDNISONE
     Indication: Rheumatoid arthritis
  160. PREDNISONE [Suspect]
     Active Substance: PREDNISONE
     Route: 048
  161. PREDNISONE [Suspect]
     Active Substance: PREDNISONE
  162. PREDNISONE [Suspect]
     Active Substance: PREDNISONE
     Route: 048
  163. PREDNISONE [Suspect]
     Active Substance: PREDNISONE
  164. PREDNISONE [Suspect]
     Active Substance: PREDNISONE
  165. PREDNISONE [Suspect]
     Active Substance: PREDNISONE
  166. PREDNISONE [Suspect]
     Active Substance: PREDNISONE
     Route: 048
  167. PREDNISONE [Suspect]
     Active Substance: PREDNISONE
     Route: 048
  168. PREDNISONE [Suspect]
     Active Substance: PREDNISONE
     Route: 048
  169. LEFLUNOMIDE [Suspect]
     Active Substance: LEFLUNOMIDE
     Indication: Rheumatoid arthritis
     Route: 048
  170. LEFLUNOMIDE [Suspect]
     Active Substance: LEFLUNOMIDE
     Indication: Product used for unknown indication
  171. LEFLUNOMIDE [Suspect]
     Active Substance: LEFLUNOMIDE
  172. LEFLUNOMIDE [Suspect]
     Active Substance: LEFLUNOMIDE
     Route: 048
  173. LEFLUNOMIDE [Suspect]
     Active Substance: LEFLUNOMIDE
     Route: 065
  174. LEFLUNOMIDE [Suspect]
     Active Substance: LEFLUNOMIDE
  175. ALENDRONATE [Suspect]
     Active Substance: ALENDRONATE SODIUM
     Indication: Product used for unknown indication
     Route: 065
  176. ALENDRONATE [Suspect]
     Active Substance: ALENDRONATE SODIUM
     Indication: Rheumatoid arthritis
  177. OXYCODONE [Suspect]
     Active Substance: OXYCODONE
     Indication: Product used for unknown indication
  178. RITUXIMAB [Suspect]
     Active Substance: RITUXIMAB
     Indication: Rheumatoid arthritis
     Route: 042
  179. RITUXIMAB [Suspect]
     Active Substance: RITUXIMAB
     Route: 040
  180. RITUXIMAB [Suspect]
     Active Substance: RITUXIMAB
     Route: 043
  181. RITUXIMAB [Suspect]
     Active Substance: RITUXIMAB
  182. RITUXIMAB [Suspect]
     Active Substance: RITUXIMAB
     Route: 058
  183. RITUXIMAB [Suspect]
     Active Substance: RITUXIMAB
     Route: 042
  184. RITUXIMAB [Suspect]
     Active Substance: RITUXIMAB
     Route: 042
  185. RITUXIMAB [Suspect]
     Active Substance: RITUXIMAB
  186. RITUXIMAB [Suspect]
     Active Substance: RITUXIMAB
     Route: 016
  187. RITUXIMAB [Suspect]
     Active Substance: RITUXIMAB
     Route: 016
  188. RITUXIMAB [Suspect]
     Active Substance: RITUXIMAB
     Indication: Rheumatoid arthritis
     Route: 042
  189. RITUXIMAB [Suspect]
     Active Substance: RITUXIMAB
     Indication: Product used for unknown indication
     Route: 040
  190. RITUXIMAB [Suspect]
     Active Substance: RITUXIMAB
     Route: 043
  191. RITUXIMAB [Suspect]
     Active Substance: RITUXIMAB
  192. RITUXIMAB [Suspect]
     Active Substance: RITUXIMAB
     Route: 058
  193. RITUXIMAB [Suspect]
     Active Substance: RITUXIMAB
     Route: 065
  194. RITUXIMAB [Suspect]
     Active Substance: RITUXIMAB
     Route: 042
  195. RITUXIMAB [Suspect]
     Active Substance: RITUXIMAB
     Route: 042
  196. RITUXIMAB [Suspect]
     Active Substance: RITUXIMAB
  197. RITUXIMAB [Suspect]
     Active Substance: RITUXIMAB
     Route: 016
  198. RITUXIMAB [Suspect]
     Active Substance: RITUXIMAB
     Route: 016
  199. RITUXIMAB [Suspect]
     Active Substance: RITUXIMAB
  200. RITUXIMAB [Suspect]
     Active Substance: RITUXIMAB
  201. RITUXIMAB [Suspect]
     Active Substance: RITUXIMAB
  202. RITUXIMAB [Suspect]
     Active Substance: RITUXIMAB
     Route: 058
  203. RITUXIMAB [Suspect]
     Active Substance: RITUXIMAB
     Route: 058
  204. RITUXIMAB [Suspect]
     Active Substance: RITUXIMAB
     Route: 043
  205. RITUXIMAB [Suspect]
     Active Substance: RITUXIMAB
  206. RITUXIMAB [Suspect]
     Active Substance: RITUXIMAB
     Route: 042
  207. RITUXIMAB [Suspect]
     Active Substance: RITUXIMAB
  208. RITUXIMAB [Suspect]
     Active Substance: RITUXIMAB
     Route: 042
  209. RITUXIMAB [Suspect]
     Active Substance: RITUXIMAB
     Route: 016
  210. RITUXIMAB [Suspect]
     Active Substance: RITUXIMAB
  211. RITUXIMAB [Suspect]
     Active Substance: RITUXIMAB
  212. RITUXIMAB [Suspect]
     Active Substance: RITUXIMAB
  213. RITUXIMAB [Suspect]
     Active Substance: RITUXIMAB
     Route: 042
  214. RITUXIMAB [Suspect]
     Active Substance: RITUXIMAB
  215. RITUXIMAB [Suspect]
     Active Substance: RITUXIMAB
  216. RITUXIMAB [Suspect]
     Active Substance: RITUXIMAB
  217. RITUXIMAB [Suspect]
     Active Substance: RITUXIMAB
  218. PHENYLEPHRINE HYDROCHLORIDE [Suspect]
     Active Substance: PHENYLEPHRINE HYDROCHLORIDE
     Indication: Product used for unknown indication
  219. PHENYLEPHRINE HYDROCHLORIDE [Suspect]
     Active Substance: PHENYLEPHRINE HYDROCHLORIDE
  220. APREMILAST [Suspect]
     Active Substance: APREMILAST
     Indication: Rheumatoid arthritis
  221. IMURAN [Suspect]
     Active Substance: AZATHIOPRINE
     Indication: Rheumatoid arthritis
  222. IMURAN [Suspect]
     Active Substance: AZATHIOPRINE
  223. IMURAN [Suspect]
     Active Substance: AZATHIOPRINE
  224. IMURAN [Suspect]
     Active Substance: AZATHIOPRINE
  225. METHOTREXATE [Suspect]
     Active Substance: METHOTREXATE
     Indication: Rheumatoid arthritis
     Route: 048
  226. METHOTREXATE [Suspect]
     Active Substance: METHOTREXATE
     Route: 048
  227. METHOTREXATE [Suspect]
     Active Substance: METHOTREXATE
     Route: 050
  228. METHOTREXATE [Suspect]
     Active Substance: METHOTREXATE
     Route: 048
  229. METHOTREXATE [Suspect]
     Active Substance: METHOTREXATE
     Route: 048
  230. METHOTREXATE [Suspect]
     Active Substance: METHOTREXATE
  231. METHOTREXATE [Suspect]
     Active Substance: METHOTREXATE
  232. METHOTREXATE [Suspect]
     Active Substance: METHOTREXATE
     Route: 048
  233. METHOTREXATE [Suspect]
     Active Substance: METHOTREXATE
     Route: 013
  234. METHOTREXATE [Suspect]
     Active Substance: METHOTREXATE
     Route: 048
  235. METHOTREXATE [Suspect]
     Active Substance: METHOTREXATE
  236. METHOTREXATE [Suspect]
     Active Substance: METHOTREXATE
  237. METHOTREXATE [Suspect]
     Active Substance: METHOTREXATE
  238. METHOTREXATE [Suspect]
     Active Substance: METHOTREXATE
     Route: 048
  239. METHOTREXATE [Suspect]
     Active Substance: METHOTREXATE
     Route: 048
  240. METHOTREXATE [Suspect]
     Active Substance: METHOTREXATE
     Route: 048
  241. METHOTREXATE [Suspect]
     Active Substance: METHOTREXATE
     Route: 058
  242. METHOTREXATE [Suspect]
     Active Substance: METHOTREXATE
     Route: 058
  243. METHOTREXATE [Suspect]
     Active Substance: METHOTREXATE
     Route: 048
  244. METHOTREXATE [Suspect]
     Active Substance: METHOTREXATE
  245. METHOTREXATE [Suspect]
     Active Substance: METHOTREXATE
     Route: 016
  246. METHOTREXATE [Suspect]
     Active Substance: METHOTREXATE
  247. METHOTREXATE [Suspect]
     Active Substance: METHOTREXATE
     Route: 013
  248. METHOTREXATE [Suspect]
     Active Substance: METHOTREXATE
     Route: 048
  249. METHOTREXATE [Suspect]
     Active Substance: METHOTREXATE
     Route: 058
  250. METHOTREXATE [Suspect]
     Active Substance: METHOTREXATE
     Route: 058
  251. METHOTREXATE [Suspect]
     Active Substance: METHOTREXATE
  252. CELECOXIB [Suspect]
     Active Substance: CELECOXIB
     Indication: Product used for unknown indication
     Route: 048
  253. CELECOXIB [Suspect]
     Active Substance: CELECOXIB
  254. CELECOXIB [Suspect]
     Active Substance: CELECOXIB
  255. CELECOXIB [Suspect]
     Active Substance: CELECOXIB
  256. CELECOXIB [Suspect]
     Active Substance: CELECOXIB
  257. CELECOXIB [Suspect]
     Active Substance: CELECOXIB
  258. CETIRIZINE [Suspect]
     Active Substance: CETIRIZINE HYDROCHLORIDE
     Indication: Rheumatoid arthritis
  259. CETIRIZINE [Suspect]
     Active Substance: CETIRIZINE HYDROCHLORIDE
  260. CETIRIZINE [Suspect]
     Active Substance: CETIRIZINE HYDROCHLORIDE
  261. CETIRIZINE [Suspect]
     Active Substance: CETIRIZINE HYDROCHLORIDE
  262. CETIRIZINE [Suspect]
     Active Substance: CETIRIZINE HYDROCHLORIDE
  263. CETIRIZINE [Suspect]
     Active Substance: CETIRIZINE HYDROCHLORIDE
     Route: 048
  264. CETIRIZINE [Suspect]
     Active Substance: CETIRIZINE HYDROCHLORIDE
     Route: 048
  265. CETIRIZINE [Suspect]
     Active Substance: CETIRIZINE HYDROCHLORIDE
  266. CETIRIZINE [Suspect]
     Active Substance: CETIRIZINE HYDROCHLORIDE
  267. CETIRIZINE [Suspect]
     Active Substance: CETIRIZINE HYDROCHLORIDE
  268. RAMIPRIL [Suspect]
     Active Substance: RAMIPRIL
     Indication: Product used for unknown indication
  269. RAMIPRIL [Suspect]
     Active Substance: RAMIPRIL
     Indication: Rheumatoid arthritis
  270. RAMIPRIL [Suspect]
     Active Substance: RAMIPRIL
     Route: 016
  271. RAMIPRIL [Suspect]
     Active Substance: RAMIPRIL
  272. ACETAMINOPHEN AND CODEINE [Suspect]
     Active Substance: ACETAMINOPHEN\CODEINE PHOSPHATE
     Indication: Rheumatoid arthritis
  273. ACETAMINOPHEN AND CODEINE [Suspect]
     Active Substance: ACETAMINOPHEN\CODEINE PHOSPHATE
     Indication: Product used for unknown indication
  274. ACTEMRA [Suspect]
     Active Substance: TOCILIZUMAB
     Route: 042
  275. ACTEMRA [Suspect]
     Active Substance: TOCILIZUMAB
     Route: 058
  276. ACTEMRA [Suspect]
     Active Substance: TOCILIZUMAB
     Route: 042
  277. ACTEMRA [Suspect]
     Active Substance: TOCILIZUMAB
     Route: 058
  278. ACTEMRA [Suspect]
     Active Substance: TOCILIZUMAB
     Route: 058
  279. ACTEMRA [Suspect]
     Active Substance: TOCILIZUMAB
     Route: 050
  280. ACTEMRA [Suspect]
     Active Substance: TOCILIZUMAB
     Route: 042
  281. ACTEMRA [Suspect]
     Active Substance: TOCILIZUMAB
     Route: 042
  282. ACTEMRA [Suspect]
     Active Substance: TOCILIZUMAB
     Route: 042
  283. ACTEMRA [Suspect]
     Active Substance: TOCILIZUMAB
     Route: 058
  284. ACTEMRA [Suspect]
     Active Substance: TOCILIZUMAB
     Route: 042
  285. ACTEMRA [Suspect]
     Active Substance: TOCILIZUMAB
  286. ACTEMRA [Suspect]
     Active Substance: TOCILIZUMAB
     Route: 042
  287. ACTEMRA [Suspect]
     Active Substance: TOCILIZUMAB
     Route: 042
  288. ACTEMRA [Suspect]
     Active Substance: TOCILIZUMAB
     Route: 042
  289. ACTEMRA [Suspect]
     Active Substance: TOCILIZUMAB
     Route: 042
  290. ACTEMRA [Suspect]
     Active Substance: TOCILIZUMAB
     Route: 042
  291. ACTEMRA [Suspect]
     Active Substance: TOCILIZUMAB
     Route: 042
  292. ACTEMRA [Suspect]
     Active Substance: TOCILIZUMAB
     Route: 042
  293. ACTEMRA [Suspect]
     Active Substance: TOCILIZUMAB
  294. ACTEMRA [Suspect]
     Active Substance: TOCILIZUMAB
     Route: 058
  295. ACTEMRA [Suspect]
     Active Substance: TOCILIZUMAB
  296. ACTEMRA [Suspect]
     Active Substance: TOCILIZUMAB
  297. ACTEMRA [Suspect]
     Active Substance: TOCILIZUMAB
     Route: 058
  298. ACTEMRA [Suspect]
     Active Substance: TOCILIZUMAB
     Route: 016
  299. ACTEMRA [Suspect]
     Active Substance: TOCILIZUMAB
     Route: 058
  300. ACTEMRA [Suspect]
     Active Substance: TOCILIZUMAB
     Route: 042
  301. ACTEMRA [Suspect]
     Active Substance: TOCILIZUMAB
     Route: 058
  302. ACTEMRA [Suspect]
     Active Substance: TOCILIZUMAB
  303. ACTEMRA [Suspect]
     Active Substance: TOCILIZUMAB
  304. ACTEMRA [Suspect]
     Active Substance: TOCILIZUMAB
  305. ACTEMRA [Suspect]
     Active Substance: TOCILIZUMAB
     Route: 016
  306. ACTEMRA [Suspect]
     Active Substance: TOCILIZUMAB
  307. DICLOFENAC POTASSIUM [Suspect]
     Active Substance: DICLOFENAC POTASSIUM
     Indication: Product used for unknown indication
  308. DICLOFENAC POTASSIUM [Suspect]
     Active Substance: DICLOFENAC POTASSIUM
     Indication: Rheumatoid arthritis
  309. ATOMOXETINE [Suspect]
     Active Substance: ATOMOXETINE
     Indication: Migraine
  310. ATOMOXETINE [Suspect]
     Active Substance: ATOMOXETINE
  311. ATOMOXETINE [Suspect]
     Active Substance: ATOMOXETINE
  312. ATOMOXETINE [Suspect]
     Active Substance: ATOMOXETINE
  313. ATOMOXETINE [Suspect]
     Active Substance: ATOMOXETINE
  314. ATOMOXETINE [Suspect]
     Active Substance: ATOMOXETINE
  315. BERINERT [Suspect]
     Active Substance: HUMAN C1-ESTERASE INHIBITOR
     Indication: Product used for unknown indication
  316. BERINERT [Suspect]
     Active Substance: HUMAN C1-ESTERASE INHIBITOR
     Indication: Rheumatoid arthritis
  317. BOTULINUM TOXIN TYPE A [Suspect]
     Active Substance: BOTULINUM TOXIN TYPE A
     Indication: Product used for unknown indication
  318. BUTRANS [Suspect]
     Active Substance: BUPRENORPHINE
     Indication: Product used for unknown indication
  319. BUTRANS [Suspect]
     Active Substance: BUPRENORPHINE
  320. BUTRANS [Suspect]
     Active Substance: BUPRENORPHINE
  321. CALCIUM ASCORBATE [Suspect]
     Active Substance: CALCIUM ASCORBATE
     Indication: Product used for unknown indication
  322. CALCIUM ASCORBATE [Suspect]
     Active Substance: CALCIUM ASCORBATE
  323. CORTISONE ACETATE [Suspect]
     Active Substance: CORTISONE ACETATE
     Indication: Rheumatoid arthritis
  324. CORTISONE ACETATE [Suspect]
     Active Substance: CORTISONE ACETATE
  325. CORTISONE ACETATE [Suspect]
     Active Substance: CORTISONE ACETATE
  326. CORTISONE ACETATE [Suspect]
     Active Substance: CORTISONE ACETATE
  327. CORTISONE ACETATE [Suspect]
     Active Substance: CORTISONE ACETATE
  328. CORTISONE ACETATE [Suspect]
     Active Substance: CORTISONE ACETATE
  329. CORTISONE ACETATE [Suspect]
     Active Substance: CORTISONE ACETATE
  330. CORTISONE ACETATE [Suspect]
     Active Substance: CORTISONE ACETATE
  331. DOMPERIDONE MALEATE [Suspect]
     Active Substance: DOMPERIDONE MALEATE
     Indication: Product used for unknown indication
  332. DOMPERIDONE MALEATE [Suspect]
     Active Substance: DOMPERIDONE MALEATE
  333. CALCIUM CITRATE [Suspect]
     Active Substance: CALCIUM CITRATE
     Indication: Product used for unknown indication
  334. CALCIUM GLUBIONATE [Suspect]
     Active Substance: CALCIUM GLUBIONATE
     Indication: Product used for unknown indication
     Route: 016
  335. CALCIUM GLUBIONATE [Suspect]
     Active Substance: CALCIUM GLUBIONATE
  336. CALCIUM GLUBIONATE [Suspect]
     Active Substance: CALCIUM GLUBIONATE
  337. ARAVA [Suspect]
     Active Substance: LEFLUNOMIDE
     Indication: Rheumatoid arthritis
     Route: 048
  338. ARAVA [Suspect]
     Active Substance: LEFLUNOMIDE
     Route: 048
  339. ARAVA [Suspect]
     Active Substance: LEFLUNOMIDE
     Route: 048
  340. ARAVA [Suspect]
     Active Substance: LEFLUNOMIDE
  341. GOLD [Suspect]
     Active Substance: GOLD
     Indication: Product used for unknown indication
  342. CIMZIA [Suspect]
     Active Substance: CERTOLIZUMAB PEGOL
     Indication: Rheumatoid arthritis
     Route: 058
  343. CIMZIA [Suspect]
     Active Substance: CERTOLIZUMAB PEGOL
     Route: 058
  344. CIMZIA [Suspect]
     Active Substance: CERTOLIZUMAB PEGOL
     Route: 058
  345. CIMZIA [Suspect]
     Active Substance: CERTOLIZUMAB PEGOL
     Route: 058
  346. DESOXIMETASONE [Suspect]
     Active Substance: DESOXIMETASONE
     Indication: Rheumatoid arthritis
  347. DESOXIMETASONE [Suspect]
     Active Substance: DESOXIMETASONE
     Route: 058
  348. DESOXIMETASONE [Suspect]
     Active Substance: DESOXIMETASONE
  349. DESOXIMETASONE [Suspect]
     Active Substance: DESOXIMETASONE
     Route: 058
  350. DESOXIMETASONE [Suspect]
     Active Substance: DESOXIMETASONE
     Route: 058
  351. ENBREL [Suspect]
     Active Substance: ETANERCEPT
     Indication: Rheumatoid arthritis
     Route: 058
  352. ENBREL [Suspect]
     Active Substance: ETANERCEPT
     Route: 058
  353. ENBREL [Suspect]
     Active Substance: ETANERCEPT
     Route: 058
  354. ENBREL [Suspect]
     Active Substance: ETANERCEPT
     Route: 058
  355. ENBREL [Suspect]
     Active Substance: ETANERCEPT
     Route: 058
  356. ENBREL [Suspect]
     Active Substance: ETANERCEPT
     Route: 058
  357. ENBREL [Suspect]
     Active Substance: ETANERCEPT
  358. ENBREL [Suspect]
     Active Substance: ETANERCEPT
     Route: 058
  359. ENBREL [Suspect]
     Active Substance: ETANERCEPT
  360. ENBREL [Suspect]
     Active Substance: ETANERCEPT
     Route: 058
  361. ENBREL [Suspect]
     Active Substance: ETANERCEPT
     Route: 058
  362. ENBREL [Suspect]
     Active Substance: ETANERCEPT
     Route: 058
  363. ERGOCALCIFEROL [Suspect]
     Active Substance: ERGOCALCIFEROL
     Indication: Product used for unknown indication
  364. ERGOCALCIFEROL [Suspect]
     Active Substance: ERGOCALCIFEROL
  365. FLUMETHASONE [Suspect]
     Active Substance: FLUMETHASONE
     Indication: Product used for unknown indication
  366. LEFLUNOMIDE [Suspect]
     Active Substance: LEFLUNOMIDE
     Route: 048
  367. LEFLUNOMIDE [Suspect]
     Active Substance: LEFLUNOMIDE
  368. LEFLUNOMIDE [Suspect]
     Active Substance: LEFLUNOMIDE
     Route: 048
  369. LEFLUNOMIDE [Suspect]
     Active Substance: LEFLUNOMIDE
  370. LEFLUNOMIDE [Suspect]
     Active Substance: LEFLUNOMIDE
  371. LEFLUNOMIDE [Suspect]
     Active Substance: LEFLUNOMIDE
  372. LEFLUNOMIDE [Suspect]
     Active Substance: LEFLUNOMIDE
  373. LEFLUNOMIDE [Suspect]
     Active Substance: LEFLUNOMIDE
     Route: 048
  374. LEFLUNOMIDE [Suspect]
     Active Substance: LEFLUNOMIDE
  375. LEFLUNOMIDE [Suspect]
     Active Substance: LEFLUNOMIDE
  376. LEFLUNOMIDE [Suspect]
     Active Substance: LEFLUNOMIDE
  377. FOSAMAX [Suspect]
     Active Substance: ALENDRONATE SODIUM
     Indication: Rheumatoid arthritis
     Route: 048
  378. FOSAMAX [Suspect]
     Active Substance: ALENDRONATE SODIUM
     Route: 016
  379. FOSAMAX [Suspect]
     Active Substance: ALENDRONATE SODIUM
     Route: 058
  380. HAIR KERATIN AMINO ACIDS GOLD COMPLEX [Suspect]
     Active Substance: HAIR KERATIN AMINO ACIDS GOLD COMPLEX
     Indication: Product used for unknown indication
  381. HAIR KERATIN AMINO ACIDS GOLD COMPLEX [Suspect]
     Active Substance: HAIR KERATIN AMINO ACIDS GOLD COMPLEX
     Route: 030
  382. HAIR KERATIN AMINO ACIDS GOLD COMPLEX [Suspect]
     Active Substance: HAIR KERATIN AMINO ACIDS GOLD COMPLEX
     Route: 030
  383. HAIR KERATIN AMINO ACIDS GOLD COMPLEX [Suspect]
     Active Substance: HAIR KERATIN AMINO ACIDS GOLD COMPLEX
  384. HYDROCORTISONE PROBUTATE [Suspect]
     Active Substance: HYDROCORTISONE PROBUTATE
     Indication: Product used for unknown indication
  385. MAGNESIUM CITRATE [Suspect]
     Active Substance: MAGNESIUM CITRATE
     Indication: Product used for unknown indication
  386. HYDROXYCHLOROQUINE [Suspect]
     Active Substance: HYDROXYCHLOROQUINE
     Indication: Rheumatoid arthritis
     Route: 048
  387. HYDROXYCHLOROQUINE [Suspect]
     Active Substance: HYDROXYCHLOROQUINE
     Route: 048
  388. HYDROXYCHLOROQUINE [Suspect]
     Active Substance: HYDROXYCHLOROQUINE
  389. HYDROXYCHLOROQUINE [Suspect]
     Active Substance: HYDROXYCHLOROQUINE
     Route: 048
  390. HYDROXYCHLOROQUINE [Suspect]
     Active Substance: HYDROXYCHLOROQUINE
     Route: 048
  391. HYDROXYCHLOROQUINE [Suspect]
     Active Substance: HYDROXYCHLOROQUINE
     Route: 048
  392. HYDROXYCHLOROQUINE [Suspect]
     Active Substance: HYDROXYCHLOROQUINE
     Route: 048
  393. HYDROXYCHLOROQUINE [Suspect]
     Active Substance: HYDROXYCHLOROQUINE
  394. HYDROXYCHLOROQUINE [Suspect]
     Active Substance: HYDROXYCHLOROQUINE
  395. HYDROXYCHLOROQUINE [Suspect]
     Active Substance: HYDROXYCHLOROQUINE
  396. HYDROXYCHLOROQUINE [Suspect]
     Active Substance: HYDROXYCHLOROQUINE
  397. HYDROXYCHLOROQUINE [Suspect]
     Active Substance: HYDROXYCHLOROQUINE
  398. HYDROXYCHLOROQUINE [Suspect]
     Active Substance: HYDROXYCHLOROQUINE
     Route: 058
  399. HYDROXYCHLOROQUINE [Suspect]
     Active Substance: HYDROXYCHLOROQUINE
     Route: 048
  400. HYDROXYCHLOROQUINE [Suspect]
     Active Substance: HYDROXYCHLOROQUINE
     Route: 048
  401. HYDROXYCHLOROQUINE [Suspect]
     Active Substance: HYDROXYCHLOROQUINE
  402. HYDROXYCHLOROQUINE [Suspect]
     Active Substance: HYDROXYCHLOROQUINE
  403. HYDROXYCHLOROQUINE [Suspect]
     Active Substance: HYDROXYCHLOROQUINE
     Route: 048
  404. HYDROXYCHLOROQUINE [Suspect]
     Active Substance: HYDROXYCHLOROQUINE
     Route: 058
  405. HYDROXYCHLOROQUINE [Suspect]
     Active Substance: HYDROXYCHLOROQUINE
  406. HYDROXYCHLOROQUINE [Suspect]
     Active Substance: HYDROXYCHLOROQUINE
     Route: 016
  407. HYDROXYCHLOROQUINE [Suspect]
     Active Substance: HYDROXYCHLOROQUINE
     Route: 058
  408. NUCALA [Suspect]
     Active Substance: MEPOLIZUMAB
     Indication: Product used for unknown indication
  409. RANITIDINE [Suspect]
     Active Substance: RANITIDINE
     Indication: Product used for unknown indication
  410. CETIRIZINE HYDROCHLORIDE\PSEUDOEPHEDRINE HYDROCHLORIDE [Suspect]
     Active Substance: CETIRIZINE HYDROCHLORIDE\PSEUDOEPHEDRINE HYDROCHLORIDE
     Indication: Product used for unknown indication
  411. CETIRIZINE HYDROCHLORIDE\PSEUDOEPHEDRINE HYDROCHLORIDE [Suspect]
     Active Substance: CETIRIZINE HYDROCHLORIDE\PSEUDOEPHEDRINE HYDROCHLORIDE
     Indication: Rheumatoid arthritis
  412. CETIRIZINE HYDROCHLORIDE\PSEUDOEPHEDRINE HYDROCHLORIDE [Suspect]
     Active Substance: CETIRIZINE HYDROCHLORIDE\PSEUDOEPHEDRINE HYDROCHLORIDE
  413. CETIRIZINE HYDROCHLORIDE\PSEUDOEPHEDRINE HYDROCHLORIDE [Suspect]
     Active Substance: CETIRIZINE HYDROCHLORIDE\PSEUDOEPHEDRINE HYDROCHLORIDE
  414. CETIRIZINE HYDROCHLORIDE\PSEUDOEPHEDRINE HYDROCHLORIDE [Suspect]
     Active Substance: CETIRIZINE HYDROCHLORIDE\PSEUDOEPHEDRINE HYDROCHLORIDE
  415. CETIRIZINE HYDROCHLORIDE\PSEUDOEPHEDRINE HYDROCHLORIDE [Suspect]
     Active Substance: CETIRIZINE HYDROCHLORIDE\PSEUDOEPHEDRINE HYDROCHLORIDE
  416. CETIRIZINE HYDROCHLORIDE\PSEUDOEPHEDRINE HYDROCHLORIDE [Suspect]
     Active Substance: CETIRIZINE HYDROCHLORIDE\PSEUDOEPHEDRINE HYDROCHLORIDE
  417. CETIRIZINE HYDROCHLORIDE\PSEUDOEPHEDRINE HYDROCHLORIDE [Suspect]
     Active Substance: CETIRIZINE HYDROCHLORIDE\PSEUDOEPHEDRINE HYDROCHLORIDE
  418. TRAMADOL HYDROCHLORIDE [Suspect]
     Active Substance: TRAMADOL HYDROCHLORIDE
     Indication: Product used for unknown indication
  419. RIBOFLAVIN [Suspect]
     Active Substance: RIBOFLAVIN
     Indication: Product used for unknown indication
  420. RIBOFLAVIN [Suspect]
     Active Substance: RIBOFLAVIN
  421. SULFASALAZINE [Suspect]
     Active Substance: SULFASALAZINE
     Indication: Rheumatoid arthritis
  422. SIMPONI [Suspect]
     Active Substance: GOLIMUMAB
     Indication: Rheumatoid arthritis
  423. SIMPONI [Suspect]
     Active Substance: GOLIMUMAB
     Indication: Prostatic specific antigen
  424. SIRUKUMAB [Suspect]
     Active Substance: SIRUKUMAB
     Indication: Product used for unknown indication
  425. SIRUKUMAB [Suspect]
     Active Substance: SIRUKUMAB
  426. SIRUKUMAB [Suspect]
     Active Substance: SIRUKUMAB
  427. SIRUKUMAB [Suspect]
     Active Substance: SIRUKUMAB
  428. MYOCHRYSINE [Suspect]
     Active Substance: GOLD SODIUM THIOMALATE
     Indication: Rheumatoid arthritis
     Route: 030
  429. MYOCHRYSINE [Suspect]
     Active Substance: GOLD SODIUM THIOMALATE
     Route: 030
  430. STELARA [Suspect]
     Active Substance: USTEKINUMAB
     Indication: Product used for unknown indication
  431. PREDNISONE [Suspect]
     Active Substance: PREDNISONE
     Indication: Rheumatoid arthritis
     Route: 048
  432. PREDNISONE [Suspect]
     Active Substance: PREDNISONE
  433. PREDNISONE [Suspect]
     Active Substance: PREDNISONE
     Route: 048
  434. PREDNISONE [Suspect]
     Active Substance: PREDNISONE
     Route: 048
  435. PREDNISONE [Suspect]
     Active Substance: PREDNISONE
  436. PREDNISONE [Suspect]
     Active Substance: PREDNISONE
     Route: 048
  437. PREDNISONE [Suspect]
     Active Substance: PREDNISONE
     Route: 048
  438. PREDNISONE [Suspect]
     Active Substance: PREDNISONE
     Route: 048
  439. PREDNISONE [Suspect]
     Active Substance: PREDNISONE
     Route: 048
  440. GOLD SODIUM THIOMALATE [Suspect]
     Active Substance: GOLD SODIUM THIOMALATE
     Indication: Product used for unknown indication
  441. GOLD SODIUM THIOMALATE [Suspect]
     Active Substance: GOLD SODIUM THIOMALATE
  442. ASCORBIC ACID\CALCIUM [Suspect]
     Active Substance: ASCORBIC ACID\CALCIUM
     Indication: Product used for unknown indication
  443. ZINC [Suspect]
     Active Substance: ZINC
     Indication: Product used for unknown indication
     Route: 040
  444. HUMIRA [Suspect]
     Active Substance: ADALIMUMAB
     Indication: Rheumatoid arthritis
     Route: 058
  445. HUMIRA [Suspect]
     Active Substance: ADALIMUMAB
     Indication: Product used for unknown indication
     Route: 058
  446. HUMIRA [Suspect]
     Active Substance: ADALIMUMAB
     Route: 057
  447. HUMIRA [Suspect]
     Active Substance: ADALIMUMAB
     Route: 058
  448. HUMIRA [Suspect]
     Active Substance: ADALIMUMAB
  449. HUMIRA [Suspect]
     Active Substance: ADALIMUMAB
  450. HUMIRA [Suspect]
     Active Substance: ADALIMUMAB
     Route: 058
  451. HUMIRA [Suspect]
     Active Substance: ADALIMUMAB
     Route: 058
  452. TOPIRAMATE [Suspect]
     Active Substance: TOPIRAMATE
     Indication: Product used for unknown indication
  453. TOPIRAMATE [Suspect]
     Active Substance: TOPIRAMATE
  454. TOPIRAMATE [Suspect]
     Active Substance: TOPIRAMATE
  455. TOPIRAMATE [Suspect]
     Active Substance: TOPIRAMATE
  456. TOPIRAMATE [Suspect]
     Active Substance: TOPIRAMATE
  457. VITAMIN C [Suspect]
     Active Substance: ASCORBIC ACID
     Indication: Product used for unknown indication
  458. SULFASALAZINE [Suspect]
     Active Substance: SULFASALAZINE
     Indication: Product used for unknown indication
  459. XELJANZ [Suspect]
     Active Substance: TOFACITINIB CITRATE
     Indication: Product used for unknown indication
     Route: 042
  460. XELJANZ [Suspect]
     Active Substance: TOFACITINIB CITRATE
  461. XELJANZ [Suspect]
     Active Substance: TOFACITINIB CITRATE
  462. XELJANZ [Suspect]
     Active Substance: TOFACITINIB CITRATE
  463. XELJANZ [Suspect]
     Active Substance: TOFACITINIB CITRATE
  464. XELJANZ [Suspect]
     Active Substance: TOFACITINIB CITRATE
     Route: 048
  465. XELJANZ [Suspect]
     Active Substance: TOFACITINIB CITRATE
  466. XELJANZ [Suspect]
     Active Substance: TOFACITINIB CITRATE
     Route: 048
  467. HYDROCORTISONE PROBUTATE [Suspect]
     Active Substance: HYDROCORTISONE PROBUTATE
     Indication: Rheumatoid arthritis
  468. NAPROXEN [Suspect]
     Active Substance: NAPROXEN
     Indication: Product used for unknown indication
  469. TETRACYCLINE HYDROCHLORIDE [Suspect]
     Active Substance: TETRACYCLINE HYDROCHLORIDE
     Indication: Rheumatoid arthritis

REACTIONS (9)
  - Liver injury [Fatal]
  - Memory impairment [Fatal]
  - Loss of personal independence in daily activities [Fatal]
  - Arthralgia [Fatal]
  - Arthropathy [Fatal]
  - Malaise [Fatal]
  - Mobility decreased [Fatal]
  - Lung disorder [Fatal]
  - Migraine [Fatal]
